FAERS Safety Report 25973779 (Version 2)
Quarter: 2025Q4

REPORT INFORMATION
  Report Type: Spontaneous
  Country: EU (occurrence: EU)
  Receive Date: 20251029
  Receipt Date: 20251222
  Transmission Date: 20260117
  Serious: Yes (Death)
  Sender: NOVARTIS
  Company Number: EU-IPSEN Group, Research and Development-2025-25592

PATIENT
  Age: 63 Year
  Sex: Male
  Weight: 68.4 kg

DRUGS (10)
  1. LUTETIUM OXODOTREOTIDE LU-177 [Suspect]
     Active Substance: LUTETIUM OXODOTREOTIDE LU-177
     Indication: Neuroendocrine cancer of the prostate metastatic
     Dosage: 197.58 MCI (2016-03-30 06:27:27/2)
     Route: 042
     Dates: start: 20250716
  2. GALLIUM GA-68 GOZETOTIDE [Suspect]
     Active Substance: GALLIUM GA-68 GOZETOTIDE
     Indication: Neuroendocrine cancer of the prostate metastatic
     Dosage: 2.74 MCI (ONCE/SINGLE)
     Route: 042
     Dates: start: 20250620, end: 20250620
  3. GALLIUM OXODOTREOTIDE GA-68 [Suspect]
     Active Substance: GALLIUM OXODOTREOTIDE GA-68
     Indication: Neuroendocrine cancer of the prostate metastatic
     Dosage: 5.98 MCI, ONCE/SINGLE (KIT FOR RADIOPHARMACEUTICAL PREPARATION)
     Route: 042
     Dates: start: 20250625, end: 20250625
  4. DECAPEPTYL (ACETATE) [Suspect]
     Active Substance: TRIPTORELIN ACETATE
     Indication: Prostate cancer
     Dosage: 22.5 MG
     Route: 030
     Dates: start: 20250701, end: 20250701
  5. ENALAPRIL [Concomitant]
     Active Substance: ENALAPRIL
     Indication: Product used for unknown indication
     Dosage: UNK
     Route: 065
     Dates: start: 2021
  6. ACLIDINIUM BROMIDE\FORMOTEROL FUMARATE [Concomitant]
     Active Substance: ACLIDINIUM BROMIDE\FORMOTEROL FUMARATE
     Indication: Product used for unknown indication
     Dosage: UNK
     Route: 065
     Dates: start: 2024
  7. MORPHINE [Concomitant]
     Active Substance: MORPHINE
     Indication: Product used for unknown indication
     Dosage: UNK
     Route: 065
     Dates: start: 202503, end: 20250804
  8. OMEPRAZOLE [Concomitant]
     Active Substance: OMEPRAZOLE
     Indication: Product used for unknown indication
     Dosage: UNK
     Route: 065
     Dates: start: 202503
  9. ACETAMINOPHEN [Concomitant]
     Active Substance: ACETAMINOPHEN
     Indication: Product used for unknown indication
     Dosage: UNK
     Route: 065
     Dates: start: 20250612
  10. DEXAMETHASONE [Concomitant]
     Active Substance: DEXAMETHASONE
     Indication: Product used for unknown indication
     Dosage: UNK
     Route: 065
     Dates: start: 20250701, end: 20250804

REACTIONS (2)
  - Death [Fatal]
  - Hot flush [Recovering/Resolving]

NARRATIVE: CASE EVENT DATE: 20250701
